FAERS Safety Report 9252171 (Version 2)
Quarter: 2013Q2

REPORT INFORMATION
  Report Type: Spontaneous
  Country: US (occurrence: US)
  Receive Date: 20130424
  Receipt Date: 20130515
  Transmission Date: 20140414
  Serious: No
  Sender: FDA-Public Use
  Company Number: US-VERTEX PHARMACEUTICALS INC.-2013-005274

PATIENT
  Age: 52 Year
  Sex: Male

DRUGS (15)
  1. INCIVEK [Suspect]
     Indication: HEPATITIS C
     Dosage: 1125 MG, BID
     Route: 048
     Dates: start: 20130308, end: 20130418
  2. PEGASYS [Suspect]
     Indication: HEPATITIS C
     Dosage: 180 ?G, QW
     Route: 058
     Dates: start: 20130308, end: 20130418
  3. RIBAVIRIN [Suspect]
     Indication: HEPATITIS C
     Dosage: 400 MG, BID
     Route: 048
     Dates: start: 20130308, end: 20130418
  4. EPZICOM [Concomitant]
  5. VICODIN [Concomitant]
     Dosage: UNK, PRN
  6. ATAZANAVIR [Concomitant]
  7. AZITHROMYCIN [Concomitant]
  8. QVAR [Concomitant]
  9. WELLBUTRIN [Concomitant]
  10. DOXAZOSIN [Concomitant]
  11. NAPROXEN [Concomitant]
     Dosage: UNK, PRN
  12. COMPAZINE                          /00013302/ [Concomitant]
     Dosage: UNK, PRN
  13. NORVIR [Concomitant]
  14. TEMAZEPAM [Concomitant]
     Dosage: UNK, PRN
  15. TESTOSTERONE CYPIONATE [Concomitant]

REACTIONS (3)
  - Dehydration [Unknown]
  - Off label use [Unknown]
  - Blood creatinine increased [Unknown]
